FAERS Safety Report 25148081 (Version 1)
Quarter: 2025Q2

REPORT INFORMATION
  Report Type: Spontaneous
  Country: US (occurrence: US)
  Receive Date: 20250402
  Receipt Date: 20250402
  Transmission Date: 20250716
  Serious: No
  Sender: ALEXION PHARMACEUTICALS
  Company Number: US-AstraZeneca-CH-00836633A

PATIENT
  Age: 39 Year

DRUGS (1)
  1. STRENSIQ [Suspect]
     Active Substance: ASFOTASE ALFA
     Indication: Hypophosphatasia
     Dosage: 118 MILLIGRAM, TIW

REACTIONS (2)
  - Nasal congestion [Recovered/Resolved]
  - Fatigue [Recovered/Resolved]
